FAERS Safety Report 10513341 (Version 2)
Quarter: 2014Q4

REPORT INFORMATION
  Report Type: Spontaneous
  Country: CN (occurrence: CN)
  Receive Date: 20141013
  Receipt Date: 20141117
  Transmission Date: 20150528
  Serious: Yes (Death)
  Sender: FDA-Public Use
  Company Number: CN-JNJFOC-20140926024

PATIENT

DRUGS (3)
  1. SPORANOX [Suspect]
     Active Substance: ITRACONAZOLE\SODIUM CHLORIDE
     Indication: SYSTEMIC MYCOSIS
     Dosage: SINCE THE 3RD DAY
     Route: 048
  2. SPORANOX [Suspect]
     Active Substance: ITRACONAZOLE\SODIUM CHLORIDE
     Indication: SYSTEMIC MYCOSIS
     Dosage: 1ST AND 2ND DAY
     Route: 041
  3. SPORANOX [Suspect]
     Active Substance: ITRACONAZOLE\SODIUM CHLORIDE
     Indication: SYSTEMIC MYCOSIS
     Route: 048

REACTIONS (5)
  - Drug ineffective [Unknown]
  - Adverse drug reaction [Unknown]
  - Hydrothorax [Unknown]
  - Hypokalaemia [Recovered/Resolved]
  - Death [Fatal]
